FAERS Safety Report 6264198-5 (Version None)
Quarter: 2009Q3

REPORT INFORMATION
  Report Type: 
  Country: None (occurrence: None)
  Receive Date: 20090710
  Receipt Date: 20090629
  Transmission Date: 20100115
  Serious: Yes (Hospitalization)
  Sender: FDA-Public Use
  Company Number: FR-PFIZER INC-2009182250

PATIENT
  Age: 86 Year

DRUGS (17)
  1. ZYVOXID [Suspect]
     Indication: INFECTED SKIN ULCER
     Dosage: 600 MG, 2X/DAY
     Route: 048
     Dates: start: 20081025, end: 20081108
  2. CIPROFLOXACIN [Suspect]
     Indication: INFECTED SKIN ULCER
     Dosage: 500 MG, 2X/DAY
     Route: 048
     Dates: start: 20081025, end: 20081108
  3. MOPRAL [Suspect]
     Dosage: 20 MG, 1X/DAY
     Route: 048
     Dates: end: 20081111
  4. FORTUM [Concomitant]
     Dosage: UNK
     Dates: start: 20081025, end: 20081029
  5. CIFLOX [Concomitant]
     Dosage: UNK
     Dates: start: 20081022, end: 20081023
  6. FOSFOCINE [Concomitant]
     Dosage: UNK
     Dates: start: 20081022, end: 20081023
  7. PREVISCAN [Concomitant]
     Dosage: UNK
  8. LIPANTHYL [Concomitant]
     Dosage: UNK
     Dates: end: 20081113
  9. TAHOR [Concomitant]
  10. SELOKEN [Concomitant]
     Dosage: UNK
  11. CERVOXAN [Concomitant]
     Dosage: UNK
  12. DOLIPRANE [Concomitant]
  13. PRIMALAN [Concomitant]
     Dosage: UNK
  14. FORLAX [Concomitant]
     Dosage: UNK
  15. LYRICA [Concomitant]
  16. DEROXAT [Concomitant]
     Dosage: UNK
  17. SEVREDOL [Concomitant]
     Dosage: UNK

REACTIONS (4)
  - ANAEMIA [None]
  - LEUKOPENIA [None]
  - PANCYTOPENIA [None]
  - THROMBOCYTOPENIA [None]
